FAERS Safety Report 16834281 (Version 2)
Quarter: 2020Q4

REPORT INFORMATION
  Report Type: Spontaneous
  Country: CA (occurrence: CA)
  Receive Date: 20190920
  Receipt Date: 20201125
  Transmission Date: 20210113
  Serious: Yes (Other)
  Sender: FDA-Public Use
  Company Number: CA-PFIZER INC-2017058589

PATIENT
  Age: 55 Year
  Sex: Female

DRUGS (5)
  1. XELJANZ [Suspect]
     Active Substance: TOFACITINIB CITRATE
     Dosage: 5MG/BID (2X/DAY)
     Route: 048
     Dates: start: 2019
  2. XELJANZ [Suspect]
     Active Substance: TOFACITINIB CITRATE
     Indication: RHEUMATOID ARTHRITIS
     Dosage: 5MG/BID (2X/DAY)
     Route: 048
     Dates: start: 20160209, end: 2019
  3. PLAQUENIL /00072602/ [Concomitant]
     Active Substance: HYDROXYCHLOROQUINE DIPHOSPHATE
     Indication: RHEUMATOID ARTHRITIS
     Dosage: 400 MG, DAILY
     Route: 048
     Dates: start: 20160817
  4. CELEBREX [Concomitant]
     Active Substance: CELECOXIB
     Indication: RHEUMATOID ARTHRITIS
     Dosage: UNK
     Dates: end: 20160520
  5. XELJANZ [Suspect]
     Active Substance: TOFACITINIB CITRATE
     Dosage: 5MG/BID (2X/DAY)
     Route: 048
     Dates: start: 20200124, end: 2020

REACTIONS (5)
  - Mental disorder [Unknown]
  - Illness [Unknown]
  - Lower respiratory tract infection [Recovered/Resolved]
  - General physical health deterioration [Unknown]
  - H1N1 influenza [Recovered/Resolved]

NARRATIVE: CASE EVENT DATE: 201612
